FAERS Safety Report 10010848 (Version 1)
Quarter: 2014Q1

REPORT INFORMATION
  Report Type: Spontaneous
  Country: CM (occurrence: None)
  Receive Date: 20140311
  Receipt Date: 20140311
  Transmission Date: 20141002
  Serious: Yes (Hospitalization)
  Sender: FDA-Public Use
  Company Number: 2014P1001996

PATIENT
  Age: 41 Year
  Sex: Female

DRUGS (6)
  1. ALBENDAZOLE [Suspect]
     Indication: FILARIASIS LYMPHATIC
     Dates: start: 20130710
  2. ALBENDAZOLE [Suspect]
     Indication: FILARIASIS
     Dates: start: 20130710
  3. ALBENDAZOLE [Suspect]
     Indication: ONCHOCERCIASIS
     Dates: start: 20130710
  4. MECTIZAN (IVERMECTIN) [Suspect]
     Indication: FILARIASIS LYMPHATIC
     Dates: start: 20130710
  5. MECTIZAN (IVERMECTIN) [Suspect]
     Indication: FILARIASIS
     Dates: start: 20130710
  6. MECTIZAN (IVERMECTIN) [Suspect]
     Indication: ONCHOCERCIASIS
     Dates: start: 20130710

REACTIONS (4)
  - Headache [None]
  - Vomiting [None]
  - Abdominal pain [None]
  - Gait disturbance [None]
